FAERS Safety Report 4896871-5 (Version None)
Quarter: 2006Q1

REPORT INFORMATION
  Report Type: 
  Country: None (occurrence: None)
  Receive Date: 20060131
  Receipt Date: 20060118
  Transmission Date: 20060701
  Serious: Yes (Other)
  Sender: FDA-Public Use
  Company Number: PHEH2006US01388

PATIENT
  Age: 76 Year
  Sex: Female

DRUGS (5)
  1. CALCIUM GLUCONATE [Concomitant]
  2. PANTOPRAZOLE [Concomitant]
  3. MIACALCIN [Suspect]
     Indication: OSTEOPOROSIS
     Dosage: 200 IU, QD
  4. CELLCEPT [Concomitant]
  5. PREMARIN [Concomitant]

REACTIONS (4)
  - MYASTHENIA GRAVIS [None]
  - NASAL DISCOMFORT [None]
  - RHINORRHOEA [None]
  - SNEEZING [None]
